FAERS Safety Report 15149949 (Version 9)
Quarter: 2019Q3

REPORT INFORMATION
  Report Type: Spontaneous
  Country: US (occurrence: US)
  Receive Date: 20180716
  Receipt Date: 20190718
  Transmission Date: 20191004
  Serious: Yes (Other)
  Sender: FDA-Public Use
  Company Number: US-PFIZER INC-2018281339

PATIENT
  Age: 64 Year
  Sex: Female
  Weight: 63.5 kg

DRUGS (3)
  1. RELPAX [Suspect]
     Active Substance: ELETRIPTAN HYDROBROMIDE
     Dosage: 2 DF, (2 TABLETS OF 20MG UPON ONSET )
  2. COUMADIN [Concomitant]
     Active Substance: WARFARIN SODIUM
     Dosage: UNK
  3. RELPAX [Suspect]
     Active Substance: ELETRIPTAN HYDROBROMIDE
     Indication: MIGRAINE
     Dosage: 40 MG, AS NEEDED
     Route: 048
     Dates: end: 201811

REACTIONS (7)
  - Asthenia [Unknown]
  - Blindness [Unknown]
  - Lower limb fracture [Not Recovered/Not Resolved]
  - Vomiting [Unknown]
  - Stress [Unknown]
  - Lung infection [Not Recovered/Not Resolved]
  - Nausea [Unknown]
